FAERS Safety Report 24353248 (Version 1)
Quarter: 2024Q3

REPORT INFORMATION
  Report Type: Spontaneous
  Country: NL (occurrence: NL)
  Receive Date: 20240923
  Receipt Date: 20240923
  Transmission Date: 20241016
  Serious: No
  Sender: ROCHE
  Company Number: None

PATIENT
  Age: 54 Year
  Sex: Female
  Weight: 89.0 kg

DRUGS (1)
  1. HERCEPTIN [Suspect]
     Active Substance: TRASTUZUMAB
     Indication: HER2 positive breast cancer
     Dosage: 1X EVERY 3 WEEKS HALF YEAR, MEDICINE PRESCRIBED BY DOCTOR: YES, TRASTUZUMAB INF 150MG(HER/KAN/OGI/ON
     Route: 065
     Dates: start: 20230701

REACTIONS (1)
  - Psychomotor hyperactivity [Recovered/Resolved]
